FAERS Safety Report 10031554 (Version 7)
Quarter: 2015Q2

REPORT INFORMATION
  Report Type: Spontaneous
  Country: US (occurrence: US)
  Receive Date: 20140324
  Receipt Date: 20150630
  Transmission Date: 20150821
  Serious: Yes (Hospitalization, Other)
  Sender: FDA-Public Use
  Company Number: US-009507513-1203USA03836

PATIENT
  Sex: Female
  Weight: 59.77 kg

DRUGS (3)
  1. FOSAMAX [Suspect]
     Active Substance: ALENDRONATE SODIUM
     Indication: OSTEOPOROSIS
     Dosage: 70 MG, QW
     Route: 048
     Dates: start: 20010308, end: 20060202
  2. FOSAMAX [Suspect]
     Active Substance: ALENDRONATE SODIUM
     Dosage: 1 TABLET DAILY
     Route: 048
  3. FOSAMAX PLUS D [Suspect]
     Active Substance: ALENDRONATE SODIUM\CHOLECALCIFEROL
     Indication: OSTEOPOROSIS
     Dosage: 70MG/2800IU
     Route: 048
     Dates: start: 20060315, end: 20090116

REACTIONS (147)
  - Femur fracture [Recovered/Resolved]
  - Femur fracture [Unknown]
  - Internal fixation of fracture [Unknown]
  - Bone graft [Unknown]
  - Shoulder arthroplasty [Unknown]
  - Fracture nonunion [Unknown]
  - Fracture nonunion [Unknown]
  - Spinal laminectomy [Unknown]
  - Medical device removal [Unknown]
  - Cervical myelopathy [Unknown]
  - Hyponatraemia [Recovering/Resolving]
  - Haematoma [Unknown]
  - Fall [Unknown]
  - Cataract [Unknown]
  - Toe operation [Unknown]
  - Foot deformity [Unknown]
  - Carpal tunnel syndrome [Unknown]
  - Pulmonary vascular disorder [Unknown]
  - Eye injury [Unknown]
  - Kyphosis [Unknown]
  - Cataract [Unknown]
  - Hyperuricaemia [Unknown]
  - Gastrooesophageal reflux disease [Unknown]
  - Intramedullary rod insertion [Unknown]
  - Medical device removal [Unknown]
  - Spinal rod insertion [Unknown]
  - Overdose [Unknown]
  - Osteopetrosis [Unknown]
  - Transient ischaemic attack [Unknown]
  - Carpal tunnel decompression [Unknown]
  - Dehydration [Unknown]
  - Confusional state [Recovered/Resolved]
  - Pain [Unknown]
  - Device failure [Unknown]
  - Pulmonary hypertension [Unknown]
  - Blood calcium decreased [Unknown]
  - Asthenia [Unknown]
  - Joint arthroplasty [Unknown]
  - Thrombocytopenia [Unknown]
  - Device breakage [Unknown]
  - Spinal fusion surgery [Unknown]
  - Surgery [Unknown]
  - Hypophagia [Recovered/Resolved]
  - Bone graft [Unknown]
  - Pulmonary embolism [Unknown]
  - Hyponatraemia [Not Recovered/Not Resolved]
  - Asthma [Unknown]
  - Osteoarthritis [Unknown]
  - Blood albumin decreased [Unknown]
  - Hyponatraemia [Unknown]
  - Shoulder operation [Unknown]
  - Atrioventricular block first degree [Unknown]
  - Disorientation [Recovered/Resolved]
  - White blood cell count decreased [Unknown]
  - Syncope [Unknown]
  - Bone infarction [Unknown]
  - Femur fracture [Unknown]
  - Medical device implantation [Unknown]
  - Spinal fusion surgery [Unknown]
  - Hypovolaemia [Recovering/Resolving]
  - Osteotomy [Unknown]
  - Low turnover osteopathy [Unknown]
  - Hypokalaemia [Unknown]
  - Tremor [Unknown]
  - Hypoaesthesia [Unknown]
  - Device breakage [Unknown]
  - Procedural haemorrhage [Unknown]
  - Presyncope [Unknown]
  - Chronic obstructive pulmonary disease [Not Recovered/Not Resolved]
  - Haemorrhoids [Unknown]
  - Haemorrhoid operation [Unknown]
  - Oral mucosal blistering [Unknown]
  - Incontinence [Unknown]
  - Urinary tract infection [Unknown]
  - Constipation [Unknown]
  - Pyrexia [Unknown]
  - Femur fracture [Unknown]
  - Intramedullary rod insertion [Unknown]
  - Intramedullary rod insertion [Unknown]
  - Internal fixation of fracture [Unknown]
  - Fracture nonunion [Unknown]
  - Removal of internal fixation [Unknown]
  - Hypotension [Recovering/Resolving]
  - Normochromic normocytic anaemia [Not Recovered/Not Resolved]
  - Acute kidney injury [Unknown]
  - Chronic kidney disease [Not Recovered/Not Resolved]
  - Femur fracture [Unknown]
  - Bone graft [Unknown]
  - Femur fracture [Unknown]
  - Neuropathy peripheral [Unknown]
  - Fatigue [Unknown]
  - Intervertebral disc degeneration [Unknown]
  - Scoliosis [Unknown]
  - Fall [Unknown]
  - Lumbar spinal stenosis [Unknown]
  - Blood cholesterol increased [Unknown]
  - Diabetes mellitus [Unknown]
  - Muscle spasms [Unknown]
  - Femur fracture [Unknown]
  - Open reduction of fracture [Unknown]
  - Bone graft [Unknown]
  - Intervertebral disc operation [Unknown]
  - Haemorrhagic anaemia [Recovered/Resolved]
  - Modified radical mastectomy [Unknown]
  - Femur fracture [Unknown]
  - Medical device removal [Unknown]
  - Fracture nonunion [Unknown]
  - Rectal neoplasm [Unknown]
  - Cataract operation [Unknown]
  - Aortic aneurysm [Unknown]
  - Ventricular hypokinesia [Unknown]
  - Device failure [Unknown]
  - Intramedullary rod insertion [Unknown]
  - Bone graft [Unknown]
  - Bone graft [Unknown]
  - Device breakage [Unknown]
  - Device failure [Unknown]
  - Device failure [Unknown]
  - Surgery [Unknown]
  - Mastectomy [Unknown]
  - Internal fixation of fracture [Unknown]
  - Deep vein thrombosis [Unknown]
  - Device breakage [Unknown]
  - Pain [Not Recovered/Not Resolved]
  - Anxiety [Not Recovered/Not Resolved]
  - Fall [Unknown]
  - Muscular weakness [Unknown]
  - Aortic dilatation [Unknown]
  - Dry eye [Unknown]
  - Right ventricular failure [Unknown]
  - Humerus fracture [Unknown]
  - Intramedullary rod insertion [Unknown]
  - Internal fixation of fracture [Unknown]
  - Bone graft [Unknown]
  - Medical device removal [Unknown]
  - Hip arthroplasty [Unknown]
  - Invasive ductal breast carcinoma [Unknown]
  - Internal fixation of fracture [Recovering/Resolving]
  - Intramedullary rod insertion [Unknown]
  - Rotator cuff repair [Unknown]
  - Lymphadenectomy [Unknown]
  - Hypertension [Unknown]
  - Hypothyroidism [Unknown]
  - Hypokalaemia [Recovered/Resolved]
  - Arthropod bite [Unknown]
  - Vision blurred [Unknown]
  - Dry skin [Unknown]

NARRATIVE: CASE EVENT DATE: 2002
